FAERS Safety Report 19477140 (Version 1)
Quarter: 2021Q2

REPORT INFORMATION
  Report Type: Spontaneous
  Country: US (occurrence: US)
  Receive Date: 20210629
  Receipt Date: 20210629
  Transmission Date: 20210717
  Serious: No
  Sender: FDA-Public Use
  Company Number: None

PATIENT
  Age: 28 Year
  Sex: Male
  Weight: 123.75 kg

DRUGS (1)
  1. REBINYN [Suspect]
     Active Substance: COAGULATION FACTOR IX (RECOMBINANT), GLYCOPEGYLATED
     Indication: FACTOR IX DEFICIENCY
     Dosage: OTHER FREQUENCY:WEEKLY;?
     Route: 040

REACTIONS (1)
  - Off label use [None]

NARRATIVE: CASE EVENT DATE: 20210625
